FAERS Safety Report 23685371 (Version 2)
Quarter: 2024Q2

REPORT INFORMATION
  Report Type: Other
  Country: US (occurrence: US)
  Receive Date: 20240329
  Receipt Date: 20240405
  Transmission Date: 20240716
  Serious: Yes (Hospitalization, Other)
  Sender: FDA-Public Use
  Company Number: US-INTERCEPT-PM2024000624

PATIENT
  Age: 68 Year
  Sex: Female
  Weight: 127.3 kg

DRUGS (12)
  1. OCALIVA [Suspect]
     Active Substance: OBETICHOLIC ACID
     Indication: Primary biliary cholangitis
     Dosage: 5 MILLIGRAM, QD
     Route: 048
     Dates: start: 20230710, end: 202403
  2. ELIQUIS [Suspect]
     Active Substance: APIXABAN
     Indication: Product used for unknown indication
     Dosage: UNK
     Route: 065
  3. ROCURONIUM [Suspect]
     Active Substance: ROCURONIUM BROMIDE
     Indication: Product used for unknown indication
     Dosage: UNK
     Route: 065
  4. URSODIOL [Concomitant]
     Active Substance: URSODIOL
  5. OMEPRAZOLE [Concomitant]
     Active Substance: OMEPRAZOLE
  6. VITAMINS [Concomitant]
     Active Substance: VITAMINS
  7. MINERALS\VITAMINS [Concomitant]
     Active Substance: MINERALS\VITAMINS
  8. METOPROLOL SUCCINATE [Concomitant]
     Active Substance: METOPROLOL SUCCINATE
  9. LISINOPRIL [Concomitant]
     Active Substance: LISINOPRIL
  10. LIPITOR [Concomitant]
     Active Substance: ATORVASTATIN CALCIUM
  11. CARVEDILOL [Concomitant]
     Active Substance: CARVEDILOL
  12. CLARITIN [Concomitant]
     Active Substance: LORATADINE

REACTIONS (34)
  - Atrial fibrillation [Recovered/Resolved]
  - Left ventricular failure [Recovering/Resolving]
  - Cardiogenic shock [Recovered/Resolved]
  - Respiratory arrest [Recovering/Resolving]
  - Acute respiratory failure [Recovering/Resolving]
  - Pulmonary congestion [Recovering/Resolving]
  - Pneumonia [Recovered/Resolved]
  - Acute pulmonary oedema [Recovered/Resolved]
  - Cellulitis [Recovered/Resolved]
  - Anaphylactic reaction [Recovering/Resolving]
  - Hydronephrosis [Unknown]
  - Paralysis [Recovering/Resolving]
  - Mitral valve incompetence [Recovering/Resolving]
  - Cerebral small vessel ischaemic disease [Unknown]
  - Skin discolouration [Not Recovered/Not Resolved]
  - Calculus bladder [Unknown]
  - Obesity [Unknown]
  - Essential hypertension [Unknown]
  - Ear haemorrhage [Unknown]
  - Rectal prolapse [Unknown]
  - Renal cyst [Unknown]
  - Urinary tract infection [Unknown]
  - Atelectasis [Recovering/Resolving]
  - Pleural effusion [Recovering/Resolving]
  - Superficial vein thrombosis [Unknown]
  - Vaginal prolapse [Unknown]
  - Uterovaginal prolapse [Unknown]
  - Haemorrhage [Unknown]
  - Atrophic vulvovaginitis [Unknown]
  - Hyperlipidaemia [Unknown]
  - Implantable defibrillator insertion [Recovered/Resolved]
  - Central venous catheterisation [Recovered/Resolved]
  - Cerebrovascular disorder [Unknown]
  - Alkalosis hypochloraemic [Recovering/Resolving]

NARRATIVE: CASE EVENT DATE: 20230701
